FAERS Safety Report 7042359-5 (Version None)
Quarter: 2010Q4

REPORT INFORMATION
  Report Type: 
  Country: None (occurrence: None)
  Receive Date: 20101013
  Receipt Date: 20100727
  Transmission Date: 20110411
  Serious: No
  Sender: FDA-Public Use
  Company Number: US-ASTRAZENECA-2010SE35052

PATIENT
  Sex: Male
  Weight: 77.1 kg

DRUGS (5)
  1. SYMBICORT [Suspect]
     Dosage: 80/4.5 MCG, 2 PUFFS
     Route: 055
     Dates: start: 20100723
  2. NEXIUM [Concomitant]
  3. ASPIRIN [Concomitant]
  4. TENORMIN [Concomitant]
  5. CLARINEX [Concomitant]

REACTIONS (1)
  - DYSPNOEA [None]
